FAERS Safety Report 20068966 (Version 2)
Quarter: 2022Q3

REPORT INFORMATION
  Report Type: Spontaneous
  Country: CA (occurrence: CA)
  Receive Date: 20211115
  Receipt Date: 20220701
  Transmission Date: 20221027
  Serious: Yes (Other)
  Sender: FDA-Public Use
  Company Number: CA-SAMSUNG BIOEPIS-SB-2021-26538

PATIENT
  Age: 81 Year
  Sex: Female
  Weight: 57 kg

DRUGS (4)
  1. INFLIXIMAB [Suspect]
     Active Substance: INFLIXIMAB
     Indication: Crohn^s disease
     Route: 042
  2. ENTOCORT [Concomitant]
     Active Substance: BUDESONIDE
     Indication: Product used for unknown indication
     Route: 065
  3. ENTOCORT [Concomitant]
     Active Substance: BUDESONIDE
     Dosage: SUSTAINED RELEASE CAPSULE
     Route: 065
  4. METHOTREXATE [Concomitant]
     Active Substance: METHOTREXATE
     Indication: Product used for unknown indication
     Route: 065

REACTIONS (7)
  - Cataract [Recovered/Resolved]
  - Heart rate increased [Recovered/Resolved]
  - Urinary tract infection [Recovered/Resolved]
  - Weight increased [Recovered/Resolved]
  - Drug level below therapeutic [Recovered/Resolved]
  - Intentional product use issue [Recovered/Resolved]
  - Off label use [Recovered/Resolved]
